FAERS Safety Report 18079473 (Version 1)
Quarter: 2020Q3

REPORT INFORMATION
  Report Type: Spontaneous
  Country: US (occurrence: US)
  Receive Date: 20200728
  Receipt Date: 20200728
  Transmission Date: 20201103
  Serious: No
  Sender: FDA-Public Use
  Company Number: US-009507513-2007USA006062

PATIENT
  Sex: Female

DRUGS (4)
  1. MONTELUKAST SODIUM. [Suspect]
     Active Substance: MONTELUKAST SODIUM
  2. SINGULAIR [Suspect]
     Active Substance: MONTELUKAST SODIUM
     Indication: ASTHMA
     Dosage: 1 PILL AT NIGHT
     Route: 048
     Dates: start: 199811
  3. SINGULAIR [Suspect]
     Active Substance: MONTELUKAST SODIUM
     Dosage: UNK
     Route: 048
  4. SINGULAIR [Suspect]
     Active Substance: MONTELUKAST SODIUM
     Dosage: 1 PILL AT NIGHT
     Route: 048
     Dates: start: 20200702

REACTIONS (9)
  - Ill-defined disorder [Unknown]
  - Product colour issue [Unknown]
  - Urticaria [Unknown]
  - Product odour abnormal [Unknown]
  - Asthma [Unknown]
  - Product taste abnormal [Unknown]
  - Product dose omission issue [Unknown]
  - Product taste abnormal [Unknown]
  - Product coating issue [Unknown]

NARRATIVE: CASE EVENT DATE: 202007
